FAERS Safety Report 23674188 (Version 2)
Quarter: 2024Q2

REPORT INFORMATION
  Report Type: Spontaneous
  Country: GB (occurrence: GB)
  Receive Date: 20240326
  Receipt Date: 20240405
  Transmission Date: 20240715
  Serious: Yes (Life-Threatening, Hospitalization, Other)
  Sender: FDA-Public Use
  Company Number: GB-LIPOMEDP-003678

PATIENT
  Age: 67 Year
  Sex: Male
  Weight: 65 kg

DRUGS (12)
  1. ACYCLOVIR [Suspect]
     Active Substance: ACYCLOVIR
     Indication: Antiviral prophylaxis
     Dosage: 400 MILLIGRAM (FROM 08.07.2008 3 X 650 / D FOR PRESUMED DISSEMINATED SHINGLES)
     Route: 048
     Dates: start: 20080630, end: 20080709
  2. ALLOPURINOL [Suspect]
     Active Substance: ALLOPURINOL
     Indication: Tumour lysis syndrome
     Dosage: 100 MILLIGRAM (1 DOSAGE FORM)
     Route: 048
  3. CIPROFLOXACIN [Suspect]
     Active Substance: CIPROFLOXACIN
     Indication: Antibiotic prophylaxis
     Dosage: 500 MILLIGRAM, TWO TIMES A DAY
     Route: 048
     Dates: start: 20080627, end: 20080706
  4. CLARITHROMYCIN [Suspect]
     Active Substance: CLARITHROMYCIN
     Indication: Pyrexia
     Dosage: 500 MILLIGRAM
     Route: 065
     Dates: start: 20080627, end: 20080629
  5. SIMVASTATIN [Suspect]
     Active Substance: SIMVASTATIN
     Indication: Hyperlipidaemia
     Dosage: 20 MILLIGRAM, ONCE A DAY (LONGTERM)
     Route: 048
  6. ZOPICLONE [Suspect]
     Active Substance: ZOPICLONE
     Indication: Product used for unknown indication
     Dosage: 7.50 MILLIGRAM
     Route: 065
     Dates: start: 20080627, end: 20080706
  7. BENDROFLUMETHIAZIDE [Suspect]
     Active Substance: BENDROFLUMETHIAZIDE
     Indication: Hypertension
     Dosage: 2.50 MILLIGRAM (LONGTERM USE)
     Route: 048
  8. CEFTAZIDIME [Suspect]
     Active Substance: CEFTAZIDIME
     Indication: Pyrexia
     Dosage: 2 MILLIGRAM, 3 TIMES A DAY
     Route: 065
     Dates: start: 20080627, end: 20080629
  9. CLADRIBINE [Suspect]
     Active Substance: CLADRIBINE
     Indication: Hairy cell leukaemia
     Dosage: 9.20 MILLIGRAM
     Route: 058
     Dates: start: 20080701, end: 20080705
  10. AMPHOTERICIN B [Suspect]
     Active Substance: AMPHOTERICIN B
     Indication: Product used for unknown indication
     Dosage: 10 MILLIGRAM, FOUR TIMES/DAY
     Route: 065
     Dates: start: 20080627, end: 20080706
  11. COTRIMOXAZOLE [Suspect]
     Active Substance: SULFAMETHOXAZOLE\TRIMETHOPRIM
     Indication: Antifungal prophylaxis
     Dosage: 960 MILLIGRAM (3 TIMES PER WEEK;)
     Route: 048
     Dates: start: 20080702, end: 20080704
  12. ITRACONAZOLE [Suspect]
     Active Substance: ITRACONAZOLE
     Indication: Antifungal prophylaxis
     Dosage: 200 MILLIGRAM
     Route: 065
     Dates: start: 20080627, end: 20080706

REACTIONS (10)
  - Renal impairment [Recovering/Resolving]
  - Cutaneous vasculitis [Recovered/Resolved]
  - Disseminated intravascular coagulation [Recovered/Resolved]
  - Hyperbilirubinaemia [Recovered/Resolved]
  - Septic shock [Recovered/Resolved]
  - Acute myocardial infarction [Recovered/Resolved]
  - Bradyarrhythmia [Recovered/Resolved]
  - Swelling face [Recovered/Resolved]
  - Pyrexia [Recovered/Resolved]
  - Hypotension [Recovered/Resolved]

NARRATIVE: CASE EVENT DATE: 20080705
